FAERS Safety Report 7023918-2 (Version None)
Quarter: 2010Q4

REPORT INFORMATION
  Report Type: 
  Country: None (occurrence: None)
  Receive Date: 20101001
  Receipt Date: 20100920
  Transmission Date: 20110411
  Serious: No
  Sender: FDA-Public Use
  Company Number: FR-ELI_LILLY_AND_COMPANY-FR201007000273

PATIENT
  Sex: Female
  Weight: 95 kg

DRUGS (8)
  1. CYMBALTA [Suspect]
     Indication: DEPRESSION
     Dosage: 60 MG, DAILY (1/D)
     Route: 048
     Dates: start: 20080801, end: 20081110
  2. SKENAN [Concomitant]
     Indication: BACK PAIN
     Route: 048
  3. AERIUS [Concomitant]
     Route: 048
  4. FENOFIBRATE [Concomitant]
     Indication: HYPERCHOLESTEROLAEMIA
     Dosage: UNK, UNK
     Route: 048
     Dates: end: 20081110
  5. METFORMIN HCL [Concomitant]
     Indication: DIABETES MELLITUS
     Route: 048
  6. DIAMICRON [Concomitant]
     Indication: DIABETES MELLITUS
     Route: 048
  7. ACETAMINOPHEN [Concomitant]
     Indication: BACK PAIN
     Route: 048
  8. ANTIBIOTICS [Concomitant]
     Indication: SWEAT GLAND INFECTION
     Dosage: UNK, UNK
     Route: 048
     Dates: end: 20081110

REACTIONS (2)
  - ALANINE AMINOTRANSFERASE INCREASED [None]
  - ASPARTATE AMINOTRANSFERASE INCREASED [None]
